FAERS Safety Report 6997128-9 (Version None)
Quarter: 2010Q3

REPORT INFORMATION
  Report Type: 
  Country: None (occurrence: None)
  Receive Date: 20100918
  Receipt Date: 20090914
  Transmission Date: 20110219
  Serious: No
  Sender: FDA-Public Use
  Company Number: US-WYE-H10998409

PATIENT
  Sex: Female
  Weight: 72.64 kg

DRUGS (2)
  1. EFFEXOR XR [Suspect]
     Indication: POSTPARTUM DEPRESSION
     Route: 048
     Dates: start: 20090401, end: 20090901
  2. EFFEXOR XR [Suspect]
     Dosage: ^STARTED TAKING ONE CAPSULE EVERY OTHER DAY THEN EVERY THIRD DAY^
     Route: 048
     Dates: start: 20090902, end: 20090906

REACTIONS (6)
  - ABDOMINAL PAIN UPPER [None]
  - DIARRHOEA [None]
  - DIZZINESS [None]
  - DRUG WITHDRAWAL SYNDROME [None]
  - NAUSEA [None]
  - TINNITUS [None]
